FAERS Safety Report 15753475 (Version 1)
Quarter: 2018Q4

REPORT INFORMATION
  Report Type: Spontaneous
  Country: UA (occurrence: US)
  Receive Date: 20181222
  Receipt Date: 20181222
  Transmission Date: 20190205
  Serious: No
  Sender: FDA-Public Use
  Company Number: UA-MALLINCKRODT-T201803386

PATIENT
  Sex: Female

DRUGS (9)
  1. FENTANYL TRANSDERMAL SYSTEM [Suspect]
     Active Substance: FENTANYL
     Dosage: 100 MCG/H EVERY 2 DAYS
     Route: 062
     Dates: start: 201803
  2. XANAX [Concomitant]
     Active Substance: ALPRAZOLAM
     Indication: POST-TRAUMATIC STRESS DISORDER
  3. FLEXERIL [Concomitant]
     Active Substance: CYCLOBENZAPRINE HYDROCHLORIDE
     Indication: PAIN
     Dosage: UNK
  4. GRALISE [Concomitant]
     Active Substance: GABAPENTIN
     Indication: PRODUCT USED FOR UNKNOWN INDICATION
  5. FENTANYL TRANSDERMAL SYSTEM [Suspect]
     Active Substance: FENTANYL
     Indication: ENDOMETRIOSIS
     Dosage: 100 MCG/H EVERY 3 DAYS
     Route: 062
     Dates: start: 201803
  6. BOTOX [Concomitant]
     Active Substance: ONABOTULINUMTOXINA
     Indication: PRODUCT USED FOR UNKNOWN INDICATION
     Dosage: UNK
     Route: 030
  7. XANAX [Concomitant]
     Active Substance: ALPRAZOLAM
     Indication: ANXIETY
     Dosage: 3 TIMES A DAY,
  8. FENTANYL TRANSDERMAL SYSTEM [Suspect]
     Active Substance: FENTANYL
     Indication: ENDOMETRIOSIS
     Dosage: 75MCG/HOUR, EVERY THREE DAYS
     Route: 062
     Dates: start: 201803
  9. DILAUDID [Concomitant]
     Active Substance: HYDROMORPHONE HYDROCHLORIDE
     Indication: PAIN
     Dosage: UNK

REACTIONS (7)
  - Withdrawal syndrome [Unknown]
  - Product adhesion issue [Unknown]
  - Pain [Unknown]
  - Product storage error [Unknown]
  - Inappropriate release of product for distribution [Unknown]
  - Product substitution issue [Unknown]
  - Miosis [Unknown]

NARRATIVE: CASE EVENT DATE: 2018
